APPROVED DRUG PRODUCT: METRONIDAZOLE
Active Ingredient: METRONIDAZOLE
Strength: 500MG/100ML
Dosage Form/Route: INJECTABLE;INJECTION
Application: A070170 | Product #001
Applicant: WATSON LABORATORIES INC
Approved: Apr 1, 1986 | RLD: No | RS: No | Type: DISCN